FAERS Safety Report 18534410 (Version 1)
Quarter: 2020Q4

REPORT INFORMATION
  Report Type: Spontaneous
  Country: BE (occurrence: BE)
  Receive Date: 20201123
  Receipt Date: 20201123
  Transmission Date: 20210114
  Serious: Yes (Other)
  Sender: FDA-Public Use
  Company Number: NVSC2020BE306207

PATIENT
  Age: 37 Year
  Sex: Female

DRUGS (1)
  1. RITALIN [Suspect]
     Active Substance: METHYLPHENIDATE HYDROCHLORIDE
     Indication: DRUG DEPENDENCE
     Dosage: UNK
     Route: 030

REACTIONS (12)
  - Delirium [Unknown]
  - Disturbance in attention [Unknown]
  - Insomnia [Unknown]
  - Trance [Unknown]
  - Anxiety [Unknown]
  - Palpitations [Unknown]
  - Tachycardia [Unknown]
  - Memory impairment [Unknown]
  - Dysaesthesia [Unknown]
  - Hallucination [Unknown]
  - Decreased appetite [Unknown]
  - Sense of oppression [Unknown]

NARRATIVE: CASE EVENT DATE: 1971
